FAERS Safety Report 8578530-0 (Version None)
Quarter: 2012Q2

REPORT INFORMATION
  Report Type: 
  Country: None (occurrence: None)
  Receive Date: 20120423
  Receipt Date: 20100501
  Transmission Date: 20120825
  Serious: Yes (Hospitalization)
  Sender: FDA-Public Use
  Company Number: PHEH2009US18600

PATIENT
  Age: 87 Year
  Sex: Female

DRUGS (2)
  1. EXJADE [Suspect]
     Indication: SERUM FERRITIN INCREASED
     Dosage: 1250 MG, QD, ORAL
     Route: 048
  2. EXJADE [Suspect]
     Indication: IRON OVERLOAD
     Dosage: 1250 MG, QD, ORAL
     Route: 048

REACTIONS (1)
  - NEOPLASM MALIGNANT [None]
